FAERS Safety Report 19101923 (Version 2)
Quarter: 2022Q2

REPORT INFORMATION
  Report Type: Spontaneous
  Country: US (occurrence: US)
  Receive Date: 20210407
  Receipt Date: 20220426
  Transmission Date: 20220721
  Serious: No
  Sender: FDA-Public Use
  Company Number: US-PFIZER INC-2021107011

PATIENT
  Age: 41 Year
  Sex: Female

DRUGS (2)
  1. XELJANZ XR [Suspect]
     Active Substance: TOFACITINIB CITRATE
     Indication: Psoriatic arthropathy
     Dosage: 11 MG, 1X/DAY
  2. XELJANZ XR [Suspect]
     Active Substance: TOFACITINIB CITRATE
     Indication: Mast cell activation syndrome

REACTIONS (4)
  - Product dose omission issue [Recovered/Resolved]
  - Pruritus [Unknown]
  - Urticaria [Unknown]
  - Laryngitis [Unknown]

NARRATIVE: CASE EVENT DATE: 20190701
